FAERS Safety Report 4930065-X (Version None)
Quarter: 2006Q1

REPORT INFORMATION
  Report Type: 
  Country: None (occurrence: None)
  Receive Date: 20060228
  Receipt Date: 20060218
  Transmission Date: 20060701
  Serious: Yes (Hospitalization)
  Sender: FDA-Public Use
  Company Number: TOR 2006-00101

PATIENT
  Age: 72 Year
  Sex: Male

DRUGS (3)
  1. FARESTON [Suspect]
     Dosage: 40 MG ORAL
     Route: 048
     Dates: start: 20051001, end: 20051201
  2. XELODA [Suspect]
     Indication: BREAST CANCER
     Dosage: ORAL
     Route: 048
  3. SHA-KU-YA-KU-KANN-ZO-U-YU (CHINESE DRUG) [Concomitant]

REACTIONS (1)
  - INTERSTITIAL LUNG DISEASE [None]
